FAERS Safety Report 7353187-5 (Version None)
Quarter: 2011Q1

REPORT INFORMATION
  Report Type: 
  Country: None (occurrence: None)
  Receive Date: 20110315
  Receipt Date: 20110228
  Transmission Date: 20110831
  Serious: Yes (Hospitalization)
  Sender: FDA-Public Use
  Company Number: DE-MEDIMMUNE-MEDI-0012768

PATIENT
  Sex: Male

DRUGS (4)
  1. SALBUTAMOL [Concomitant]
  2. PHENOBARBITAL TAB [Concomitant]
  3. BUDESONIDE [Concomitant]
  4. SYNAGIS [Suspect]
     Dates: start: 20100304, end: 20110204

REACTIONS (1)
  - BRONCHOPNEUMONIA [None]
